FAERS Safety Report 7694295 (Version 4)
Quarter: 2013Q1

REPORT INFORMATION
  Report Type: Spontaneous
  Country: US (occurrence: None)
  Receive Date: 20101110
  Receipt Date: 20130228
  Transmission Date: 20140127
  Serious: Yes (Hospitalization, Other)
  Sender: FDA-Public Use
  Company Number: JPI-P-009386

PATIENT
  Age: 81 Year
  Sex: Male
  Weight: 92.99 kg

DRUGS (8)
  1. XYREM [Suspect]
     Dosage: 4.5 GM (2.25 GM, 2 IN 1 D), ORAL
     Route: 048
     Dates: start: 20071204
  2. DEXTROAMPHETAMINE [Concomitant]
  3. ALBUTEROL [Concomitant]
  4. AMLODIPINE [Concomitant]
  5. CARVEDILOL [Concomitant]
  6. FLUOXETINE HCL [Concomitant]
  7. GALANTAMINE HYDROBROMIDE [Concomitant]
  8. ACETAMINOPHEN [Concomitant]

REACTIONS (12)
  - LUNG NEOPLASM [None]
  - MEMORY IMPAIRMENT [None]
  - PULMONARY OEDEMA [None]
  - DYSPNOEA [None]
  - CHRONIC MYELOID LEUKAEMIA [None]
  - BASAL CELL CARCINOMA [None]
  - DEMENTIA [None]
  - FALL [None]
  - CONVULSION [None]
  - DRUG INEFFECTIVE [None]
  - CONDITION AGGRAVATED [None]
  - BLOOD TEST ABNORMAL [None]
